FAERS Safety Report 10420338 (Version 1)
Quarter: 2014Q3

REPORT INFORMATION
  Report Type: Spontaneous
  Country: US (occurrence: None)
  Receive Date: 20140701
  Receipt Date: 20140701
  Transmission Date: 20150326
  Serious: No
  Sender: FDA-Public Use
  Company Number: 1000065738

PATIENT
  Age: 65 Year
  Sex: Male

DRUGS (4)
  1. FIBER (POLYCARBOPHIL CALCIUM) (POLYCARBOPHIL CALCIUM) [Concomitant]
  2. LINZESS [Suspect]
     Active Substance: LINACLOTIDE
     Indication: CONSTIPATION
     Dosage: 290 MCG (290 MCG, 1 IN 1 D), ORAL
     Route: 048
  3. STOOL SOFTENER NOS (STOOL SOFTENER NOS) (STOOL SOFTENER NOS) [Concomitant]
  4. LINZESS [Suspect]
     Active Substance: LINACLOTIDE
     Indication: IRRITABLE BOWEL SYNDROME
     Dosage: 290 MCG (290 MCG, 1 IN 1 D), ORAL
     Route: 048

REACTIONS (2)
  - Intentional product misuse [None]
  - Diarrhoea [None]
